FAERS Safety Report 9549913 (Version 2)
Quarter: 2014Q1

REPORT INFORMATION
  Report Type: Spontaneous
  Country: BR (occurrence: BR)
  Receive Date: 20130924
  Receipt Date: 20140106
  Transmission Date: 20141002
  Serious: Yes (Other)
  Sender: FDA-Public Use
  Company Number: BR-009507513-1309BRA008996

PATIENT
  Age: 38 Year
  Sex: Female
  Weight: 60 kg

DRUGS (3)
  1. NUVARING [Suspect]
     Indication: CONTRACEPTION
     Dosage: UNK
     Route: 067
     Dates: start: 2004, end: 2011
  2. NUVARING [Suspect]
     Indication: MENSTRUAL CYCLE MANAGEMENT
     Dosage: UNK
     Route: 067
     Dates: start: 201308, end: 2013
  3. NUVARING [Suspect]
     Dosage: UNK
     Route: 067
     Dates: start: 20130903, end: 201309

REACTIONS (13)
  - Caesarean section [Recovered/Resolved]
  - Premature baby [Recovered/Resolved]
  - Gestational diabetes [Recovered/Resolved]
  - Hypertension [Not Recovered/Not Resolved]
  - Anaemia [Unknown]
  - Menstruation irregular [Recovered/Resolved]
  - Menstruation irregular [Recovered/Resolved]
  - Maternal exposure before pregnancy [Unknown]
  - Drug administration error [Unknown]
  - Off label use [Unknown]
  - Inappropriate schedule of drug administration [Unknown]
  - Off label use [Unknown]
  - Off label use [Unknown]
